FAERS Safety Report 21713121 (Version 2)
Quarter: 2022Q4

REPORT INFORMATION
  Report Type: Report from Study
  Country: US (occurrence: US)
  Receive Date: 20221212
  Receipt Date: 20221213
  Transmission Date: 20230113
  Serious: Yes (Hospitalization)
  Sender: FDA-Public Use
  Company Number: US-ABBVIE-4227170

PATIENT
  Age: 48 Year
  Sex: Female
  Weight: 73 kg

DRUGS (2)
  1. HUMIRA [Suspect]
     Active Substance: ADALIMUMAB
     Indication: Crohn^s disease
     Dosage: 40MG
     Route: 058
     Dates: start: 2021, end: 202211
  2. HUMIRA [Suspect]
     Active Substance: ADALIMUMAB
     Dosage: 40MG
     Route: 058
     Dates: start: 202212

REACTIONS (4)
  - Crohn^s disease [Recovering/Resolving]
  - Drug ineffective [Unknown]
  - Hypophagia [Recovering/Resolving]
  - Frequent bowel movements [Recovering/Resolving]

NARRATIVE: CASE EVENT DATE: 20220911
